FAERS Safety Report 7907082-0 (Version None)
Quarter: 2011Q4

REPORT INFORMATION
  Report Type: 
  Country: None (occurrence: None)
  Receive Date: 20111110
  Receipt Date: 20110214
  Transmission Date: 20120403
  Serious: No
  Sender: FDA-Public Use
  Company Number: US-ASTRAZENECA-2011SE08503

PATIENT
  Age: 49 Year
  Sex: Male
  Weight: 93 kg

DRUGS (7)
  1. CLOPIDOGREL [Concomitant]
     Indication: HYPERCHOLESTEROLAEMIA
  2. ZESTRIL [Suspect]
     Route: 048
     Dates: start: 20090101
  3. FISH OIL [Concomitant]
  4. HUMIRA [Suspect]
     Dosage: 40MG 1 IN 2 WK, 40 MG/ 0.8ML PEN
     Route: 065
     Dates: start: 20101101, end: 20101201
  5. HUMIRA [Suspect]
     Dosage: 20MG 1 IN 2 WK, 40 MG/ 0.8ML PEN
     Route: 065
     Dates: start: 20110101
  6. ASPIRIN [Concomitant]
  7. SIMVASTATIN [Concomitant]
     Indication: HYPERCHOLESTEROLAEMIA

REACTIONS (4)
  - ARTHRALGIA [None]
  - JOINT WARMTH [None]
  - FALL [None]
  - JOINT SWELLING [None]
